FAERS Safety Report 7544633-2 (Version None)
Quarter: 2011Q2

REPORT INFORMATION
  Report Type: 
  Country: None (occurrence: None)
  Receive Date: 20110614
  Receipt Date: 20110606
  Transmission Date: 20111010
  Serious: Yes (Hospitalization)
  Sender: FDA-Public Use
  Company Number: US-BIOGENIDEC-2010BI040461

PATIENT
  Age: 55 Year
  Sex: Female
  Weight: 99 kg

DRUGS (20)
  1. PROTONIX [Concomitant]
  2. FLEXOR PAIN PATCH [Concomitant]
  3. VITAMIN B-12 [Concomitant]
  4. VIVELLE [Concomitant]
  5. DRAMAMINE [Concomitant]
  6. MOTRIN [Concomitant]
  7. TYSABRI [Suspect]
     Indication: MULTIPLE SCLEROSIS
     Route: 042
     Dates: start: 20101026, end: 20101026
  8. HYZAAR [Concomitant]
  9. BISMUTH SUBSALICYLATE [Concomitant]
  10. NAPROSYN [Concomitant]
  11. MUCINEX [Concomitant]
  12. AMBIEN [Concomitant]
  13. SCOPOLAMINE [Concomitant]
  14. DARVOCET [Concomitant]
  15. CLARITIN [Concomitant]
  16. SEREVENT [Concomitant]
  17. DETROL LA [Concomitant]
  18. LASIX [Concomitant]
  19. CORRECTOL [Concomitant]
  20. VITAMIN D [Concomitant]

REACTIONS (6)
  - DYSURIA [None]
  - POOR VENOUS ACCESS [None]
  - HERPES ZOSTER [None]
  - POST HERPETIC NEURALGIA [None]
  - INTESTINAL OBSTRUCTION [None]
  - MULTIPLE SCLEROSIS RELAPSE [None]
